FAERS Safety Report 11226314 (Version 1)
Quarter: 2015Q2

REPORT INFORMATION
  Report Type: Spontaneous
  Country: US (occurrence: US)
  Receive Date: 20150629
  Receipt Date: 20150629
  Transmission Date: 20150821
  Serious: Yes (Hospitalization, Other)
  Sender: FDA-Public Use
  Company Number: US-BAYER-2015-363884

PATIENT
  Age: 60 Year
  Sex: Female
  Weight: 69 kg

DRUGS (9)
  1. VITAMIN B12 [Concomitant]
     Active Substance: CYANOCOBALAMIN
     Indication: VITAMIN SUPPLEMENTATION
     Dosage: 2500 ?G, QD
     Route: 048
     Dates: start: 20141003
  2. TRAMADOL [Concomitant]
     Active Substance: TRAMADOL
     Dosage: 50 MG, EVERY 6-8 HOURS
  3. ALEVE [Suspect]
     Active Substance: NAPROXEN SODIUM
     Indication: BACK PAIN
  4. FENOFIBRATE. [Concomitant]
     Active Substance: FENOFIBRATE
  5. NORCO [Concomitant]
     Active Substance: ACETAMINOPHEN\HYDROCODONE BITARTRATE
     Indication: BACK PAIN
     Dosage: 7.5/325 Q 6-8 HOURS
  6. VITAMIN D3 [Concomitant]
     Active Substance: CHOLECALCIFEROL
     Dosage: 1 DF, QD
     Dates: start: 20141003
  7. VITAMIN C [Concomitant]
     Active Substance: ASCORBIC ACID
     Indication: VITAMIN SUPPLEMENTATION
     Dosage: 1 DF, QD
     Route: 048
     Dates: start: 20141003
  8. AMOXICILLIN. [Concomitant]
     Active Substance: AMOXICILLIN
     Indication: PNEUMONIA
     Dosage: 875 MG, BID
     Dates: start: 20150528
  9. TRICOR [Concomitant]
     Active Substance: FENOFIBRATE
     Indication: LIPIDS INCREASED
     Dosage: 145 MG, QD
     Route: 048
     Dates: start: 20141008

REACTIONS (9)
  - Bronchial carcinoma [None]
  - Hepatic steatosis [None]
  - Drug ineffective [None]
  - Pulmonary mass [None]
  - Lymphadenopathy [None]
  - Metastases to bone [Unknown]
  - Haemoptysis [Unknown]
  - Back pain [Not Recovered/Not Resolved]
  - Metastases to liver [None]

NARRATIVE: CASE EVENT DATE: 201505
